FAERS Safety Report 6064757-9 (Version None)
Quarter: 2009Q1

REPORT INFORMATION
  Report Type: 
  Country: None (occurrence: None)
  Receive Date: 20090204
  Receipt Date: 20081124
  Transmission Date: 20090719
  Serious: Yes (Hospitalization, Other)
  Sender: FDA-Public Use
  Company Number: A0754090A

PATIENT
  Age: 72 Year
  Sex: Male
  Weight: 132 kg

DRUGS (2)
  1. ARIXTRA [Suspect]
     Dosage: 10MG PER DAY
     Route: 058
     Dates: start: 20081020, end: 20081028
  2. ANTIBIOTICS [Concomitant]

REACTIONS (1)
  - HAEMORRHAGE [None]
